FAERS Safety Report 10157961 (Version 1)
Quarter: 2014Q2

REPORT INFORMATION
  Report Type: Spontaneous
  Country: US (occurrence: US)
  Receive Date: 20140507
  Receipt Date: 20140507
  Transmission Date: 20141212
  Serious: Yes (Hospitalization)
  Sender: FDA-Public Use
  Company Number: US-GLAXOSMITHKLINE-A1072152A

PATIENT
  Age: 69 Year
  Sex: Male

DRUGS (1)
  1. VOTRIENT [Suspect]
     Indication: RETROPERITONEAL CANCER
     Dosage: 200MG SEE DOSAGE TEXT
     Route: 065

REACTIONS (1)
  - Investigation [Not Recovered/Not Resolved]
